FAERS Safety Report 4296021-2 (Version None)
Quarter: 2004Q1

REPORT INFORMATION
  Report Type: 
  Country: None (occurrence: None)
  Receive Date: 20040212
  Receipt Date: 20040204
  Transmission Date: 20041129
  Serious: Yes (Life-Threatening, Hospitalization)
  Sender: FDA-Public Use
  Company Number: 22980

PATIENT
  Age: 78 Year
  Sex: Male

DRUGS (4)
  1. NITROGLYCERIN [Suspect]
     Dosage: 1 IN 1 DAY (S)) TRANSDERMAL
     Route: 062
  2. TARGE (VALSARTAN) [Suspect]
     Indication: ESSENTIAL HYPERTENSION
     Dosage: 160 MG (160 MG, 1 IN 1 DAY (S)) ORAL
     Route: 048
  3. FENOFIBRATE [Concomitant]
  4. PLAVIX [Concomitant]

REACTIONS (8)
  - ATRIOVENTRICULAR BLOCK [None]
  - BLOOD PRESSURE DIASTOLIC DECREASED [None]
  - CARDIAC ARREST [None]
  - COMA [None]
  - HEART RATE INCREASED [None]
  - HYPERKALAEMIA [None]
  - MYDRIASIS [None]
  - RENAL IMPAIRMENT [None]
